FAERS Safety Report 9183392 (Version 2)
Quarter: 2014Q1

REPORT INFORMATION
  Report Type: Spontaneous
  Country: US (occurrence: US)
  Receive Date: 20130322
  Receipt Date: 20140318
  Transmission Date: 20141002
  Serious: No
  Sender: FDA-Public Use
  Company Number: US-BRISTOL-MYERS SQUIBB COMPANY-17263872

PATIENT
  Age: 68 Year
  Sex: Female

DRUGS (2)
  1. ERBITUX SOLN FOR INF [Suspect]
     Indication: MALIGNANT NEOPLASM OF UNKNOWN PRIMARY SITE
     Dosage: LAST DOSE: 31JAN2013
     Route: 042
     Dates: start: 20121207
  2. BENADRYL [Concomitant]
     Indication: PREMEDICATION

REACTIONS (1)
  - Blepharitis [Recovering/Resolving]
